FAERS Safety Report 20086492 (Version 1)
Quarter: 2021Q4

REPORT INFORMATION
  Report Type: Spontaneous
  Country: FR (occurrence: FR)
  Receive Date: 20211118
  Receipt Date: 20211118
  Transmission Date: 20220303
  Serious: Yes (Hospitalization, Congenital Anomaly, Other)
  Sender: FDA-Public Use
  Company Number: FR-ABBVIE-21K-056-4163860-00

PATIENT
  Sex: Male

DRUGS (5)
  1. VALPROATE SODIUM [Suspect]
     Active Substance: VALPROATE SODIUM
     Indication: Maternal exposure timing unspecified
     Route: 064
  2. HYDROXYZINE [Suspect]
     Active Substance: HYDROXYZINE HYDROCHLORIDE
     Indication: Maternal exposure timing unspecified
     Route: 064
  3. POTASSIUM CHLORIDE [Suspect]
     Active Substance: POTASSIUM CHLORIDE
     Indication: Maternal exposure timing unspecified
     Route: 064
  4. ALBUTEROL SULFATE [Suspect]
     Active Substance: ALBUTEROL SULFATE
     Indication: Maternal exposure timing unspecified
     Route: 064
  5. DIAZEPAM [Suspect]
     Active Substance: DIAZEPAM
     Indication: Maternal exposure timing unspecified
     Route: 064

REACTIONS (28)
  - Respiratory distress [Unknown]
  - Dysmorphism [Unknown]
  - Talipes [Unknown]
  - Dyspnoea [Unknown]
  - Oesophagitis [Unknown]
  - Inguinal hernia [Unknown]
  - Myopia [Unknown]
  - Premature baby [Unknown]
  - Aphasia [Unknown]
  - Speech disorder developmental [Unknown]
  - Behaviour disorder [Unknown]
  - Communication disorder [Unknown]
  - Autism spectrum disorder [Unknown]
  - Sensory integrative dysfunction [Unknown]
  - Echolalia [Unknown]
  - Stereotypy [Unknown]
  - Language disorder [Unknown]
  - Dysgraphia [Unknown]
  - Neurodevelopmental disorder [Unknown]
  - Learning disorder [Unknown]
  - Personal relationship issue [Unknown]
  - Anxiety [Unknown]
  - Emotional disorder of childhood [Unknown]
  - Disturbance in social behaviour [Unknown]
  - Visual impairment [Unknown]
  - Sleep disorder [Unknown]
  - Feeding disorder [Unknown]
  - Foetal exposure during pregnancy [Unknown]

NARRATIVE: CASE EVENT DATE: 20050202
